FAERS Safety Report 7302578-7 (Version None)
Quarter: 2011Q1

REPORT INFORMATION
  Report Type: 
  Country: None (occurrence: None)
  Receive Date: 20110218
  Receipt Date: 20110214
  Transmission Date: 20110831
  Serious: No
  Sender: FDA-Public Use
  Company Number: US-PFIZER INC-2011032750

PATIENT
  Sex: Female
  Weight: 61.2 kg

DRUGS (1)
  1. PREMPRO [Suspect]
     Indication: MENOPAUSE
     Dosage: UNK, DAILY
     Route: 048
     Dates: start: 20030101, end: 20110209

REACTIONS (1)
  - HYPERSENSITIVITY [None]
